FAERS Safety Report 16810100 (Version 2)
Quarter: 2019Q4

REPORT INFORMATION
  Report Type: Report from Study
  Country: US (occurrence: US)
  Receive Date: 20190916
  Receipt Date: 20191101
  Transmission Date: 20200122
  Serious: Yes (Hospitalization, Other)
  Sender: FDA-Public Use
  Company Number: US-JNJFOC-20190909072

PATIENT
  Age: 85 Year
  Sex: Male

DRUGS (10)
  1. STADOL [Concomitant]
     Active Substance: BUTORPHANOL TARTRATE
  2. IMBRUVICA [Suspect]
     Active Substance: IBRUTINIB
     Indication: CHRONIC LYMPHOCYTIC LEUKAEMIA
     Dosage: 420 MG, QD
     Route: 048
     Dates: start: 20180720, end: 2019
  3. AMITRIPTYLINE [Concomitant]
     Active Substance: AMITRIPTYLINE
  4. GABAPENTIN. [Concomitant]
     Active Substance: GABAPENTIN
  5. ISTALOL [Concomitant]
     Active Substance: TIMOLOL MALEATE
  6. ADVIL (MEFENAMIC ACID) [Concomitant]
     Active Substance: MEFENAMIC ACID
  7. PRESERVISION AREDS [Concomitant]
     Active Substance: MINERALS\VITAMINS
  8. TYLENOL [Concomitant]
     Active Substance: ACETAMINOPHEN
  9. LOSARTAN. [Concomitant]
     Active Substance: LOSARTAN
  10. LATANOPROST. [Concomitant]
     Active Substance: LATANOPROST

REACTIONS (5)
  - Post herpetic neuralgia [Unknown]
  - Pneumonia [Unknown]
  - Haemorrhage [Not Recovered/Not Resolved]
  - Pulmonary haemorrhage [Unknown]
  - Herpes zoster [Unknown]

NARRATIVE: CASE EVENT DATE: 201908
